FAERS Safety Report 8765178 (Version 1)
Quarter: 2012Q4

REPORT INFORMATION
  Report Type: 
  Country: US (occurrence: US)
  Receive Date: 20120903
  Receipt Date: 20120903
  Transmission Date: 20130627
  Serious: No
  Sender: FDA-Public Use
  Company Number: US-PFIZER INC-2012214109

PATIENT
  Age: 55 Year
  Sex: Male

DRUGS (1)
  1. INLYTA [Suspect]
     Indication: RENAL CELL CARCINOMA STAGE IV
     Dosage: 5 mg, 2x/day
     Dates: start: 201208

REACTIONS (4)
  - Nausea [Unknown]
  - Visual acuity reduced [Unknown]
  - Fatigue [Unknown]
  - Somnolence [Unknown]
